FAERS Safety Report 6189292-9 (Version None)
Quarter: 2009Q2

REPORT INFORMATION
  Report Type: 
  Country: None (occurrence: None)
  Receive Date: 20090512
  Receipt Date: 20090501
  Transmission Date: 20091009
  Serious: Yes (Other)
  Sender: FDA-Public Use
  Company Number: 234330K09USA

PATIENT
  Age: 23 Year
  Sex: Male

DRUGS (5)
  1. REBIF [Suspect]
     Indication: MULTIPLE SCLEROSIS
     Dosage: 44 MCG, 3 IN 1 WEEKS, SUBCUTANEOUS
     Route: 058
     Dates: start: 20090313
  2. MARIJUANA/SYNTHETIC PILL FORM OF MARIJUANA (CANNABIS SATIVA) [Suspect]
  3. FISH OIL (FISH OIL) [Concomitant]
  4. VITAMIN B12 [Concomitant]
  5. ANTIDEPRESSANT (ANTIDEPRESSANTS) [Concomitant]

REACTIONS (20)
  - ANXIETY [None]
  - CONFUSIONAL STATE [None]
  - DEPRESSION [None]
  - DYSPEPSIA [None]
  - GAIT DISTURBANCE [None]
  - GRANDIOSITY [None]
  - HEART RATE INCREASED [None]
  - HYPERTENSION [None]
  - IMPATIENCE [None]
  - INFLAMMATION [None]
  - INSOMNIA [None]
  - MEMORY IMPAIRMENT [None]
  - MOVEMENT DISORDER [None]
  - MUSCLE SPASTICITY [None]
  - PAIN [None]
  - PRESSURE OF SPEECH [None]
  - SOMNOLENCE [None]
  - THINKING ABNORMAL [None]
  - TREMOR [None]
  - WEIGHT DECREASED [None]
